FAERS Safety Report 5589525-3 (Version None)
Quarter: 2008Q1

REPORT INFORMATION
  Report Type: 
  Country: None (occurrence: None)
  Receive Date: 20080109
  Receipt Date: 20071226
  Transmission Date: 20080703
  Serious: Yes (Hospitalization)
  Sender: FDA-Public Use
  Company Number: TCI2007A07059

PATIENT
  Age: 71 Year
  Sex: Female

DRUGS (3)
  1. ACTOS [Suspect]
     Indication: DIABETES MELLITUS
     Dosage: 15 MG (15 MG, 1 D) PER ORAL
     Route: 048
  2. VOGLIBOSE (VOGLIBOSE) [Suspect]
     Indication: DIABETES MELLITUS
     Dosage: 0.9 MG (0.9 MG, 1 D) PER ORAL
     Route: 048
  3. AMARYL [Suspect]
     Indication: DIABETES MELLITUS
     Dosage: 6 MG (6 MG, 1 D) PER ORAL
     Route: 048

REACTIONS (1)
  - HYPOGLYCAEMIC COMA [None]
